FAERS Safety Report 14918355 (Version 2)
Quarter: 2018Q3

REPORT INFORMATION
  Report Type: Report from Study
  Country: US (occurrence: US)
  Receive Date: 20180521
  Receipt Date: 20180911
  Transmission Date: 20181010
  Serious: Yes (Hospitalization)
  Sender: FDA-Public Use
  Company Number: US-B.I. PHARMACEUTICALS,INC./RIDGEFIELD-2017-BI-058209

PATIENT
  Sex: Female

DRUGS (3)
  1. OFEV [Suspect]
     Active Substance: NINTEDANIB
     Route: 048
  2. WARFARIN [Concomitant]
     Active Substance: WARFARIN
     Indication: PRODUCT USED FOR UNKNOWN INDICATION
     Route: 065
  3. OFEV [Suspect]
     Active Substance: NINTEDANIB
     Indication: IDIOPATHIC PULMONARY FIBROSIS
     Route: 048
     Dates: start: 20170906

REACTIONS (10)
  - Tooth extraction [Unknown]
  - Diarrhoea [Unknown]
  - Fatigue [Unknown]
  - Lethargy [Unknown]
  - Throat irritation [Unknown]
  - Internal haemorrhage [Unknown]
  - Abdominal discomfort [Unknown]
  - Cough [Unknown]
  - Gingival bleeding [Unknown]
  - Haemoglobin decreased [Unknown]
